FAERS Safety Report 12876024 (Version 1)
Quarter: 2016Q4

REPORT INFORMATION
  Report Type: Spontaneous
  Country: US (occurrence: US)
  Receive Date: 20161024
  Receipt Date: 20161024
  Transmission Date: 20170207
  Serious: No
  Sender: FDA-Public Use
  Company Number: US-JAZZ-2016-US-015259

PATIENT
  Sex: Male

DRUGS (26)
  1. ELIDEL [Concomitant]
     Active Substance: PIMECROLIMUS
  2. PENICILLIN [Concomitant]
     Active Substance: PENICILLIN
  3. AMOXICILLIN. [Concomitant]
     Active Substance: AMOXICILLIN
  4. CLOTRIMAZOLE. [Concomitant]
     Active Substance: CLOTRIMAZOLE
  5. GRISEOFULVIN MICRO [Concomitant]
  6. KETOCONAZOLE. [Concomitant]
     Active Substance: KETOCONAZOLE
  7. OXYCODONE [Concomitant]
     Active Substance: OXYCODONE
  8. XYREM [Suspect]
     Active Substance: SODIUM OXYBATE
     Dosage: 3 G, BID
     Route: 048
     Dates: start: 200910, end: 200912
  9. ECONAZOLE [Concomitant]
     Active Substance: ECONAZOLE
  10. NEOMYCIN AND POLYMYXIN B SULFATES AND [Concomitant]
  11. ADDERALL [Concomitant]
     Active Substance: AMPHETAMINE ASPARTATE\AMPHETAMINE SULFATE\DEXTROAMPHETAMINE SACCHARATE\DEXTROAMPHETAMINE SULFATE
  12. SENNA LAXATIVE [Concomitant]
     Active Substance: SENNOSIDES
  13. XYREM [Suspect]
     Active Substance: SODIUM OXYBATE
     Dosage: 4.5 G, BID
     Route: 048
     Dates: start: 200912
  14. TOPICORT [Concomitant]
     Active Substance: DESOXIMETASONE
  15. IBUPROFEN. [Concomitant]
     Active Substance: IBUPROFEN
  16. METHYLPREDNISOLONE. [Concomitant]
     Active Substance: METHYLPREDNISOLONE
  17. XYREM [Suspect]
     Active Substance: SODIUM OXYBATE
     Indication: NARCOLEPSY
     Dosage: 2.25 G, BID
     Route: 048
     Dates: start: 200903, end: 2009
  18. CLINDAMYCIN HCL [Concomitant]
     Active Substance: CLINDAMYCIN HYDROCHLORIDE
  19. MELATONIN [Concomitant]
     Active Substance: MELATONIN
  20. BETAMETHASONE. [Concomitant]
     Active Substance: BETAMETHASONE
  21. TERBINAFINE HCL [Concomitant]
     Active Substance: TERBINAFINE HYDROCHLORIDE
  22. ECOZA [Concomitant]
     Active Substance: ECONAZOLE NITRATE
  23. DOCUSATE SODIUM. [Concomitant]
     Active Substance: DOCUSATE SODIUM
  24. LIDEX [Concomitant]
     Active Substance: FLUOCINONIDE
  25. VALTREX [Concomitant]
     Active Substance: VALACYCLOVIR HYDROCHLORIDE
  26. MULTIVITAMINS [Concomitant]
     Active Substance: VITAMINS

REACTIONS (1)
  - Dry skin [Unknown]
